FAERS Safety Report 22285423 (Version 2)
Quarter: 2023Q2

REPORT INFORMATION
  Report Type: Spontaneous
  Country: US (occurrence: US)
  Receive Date: 20230504
  Receipt Date: 20230508
  Transmission Date: 20230722
  Serious: No
  Sender: FDA-Public Use
  Company Number: US-BRISTOL-MYERS SQUIBB COMPANY-2023-063594

PATIENT
  Age: 65 Year
  Sex: Female

DRUGS (3)
  1. REVLIMID [Suspect]
     Active Substance: LENALIDOMIDE
     Indication: Plasma cell myeloma
     Route: 048
     Dates: start: 202304
  2. REVLIMID [Suspect]
     Active Substance: LENALIDOMIDE
     Dosage: FREQ -DAILY X14 DAYS OFF 7
     Route: 048
     Dates: start: 20230420
  3. REVLIMID [Suspect]
     Active Substance: LENALIDOMIDE
     Dosage: TAKE 1 CAPSULED DAILY FOR 14 DAYS AND 7 DAYS OFF

REACTIONS (8)
  - Fatigue [Recovering/Resolving]
  - Oedema [Unknown]
  - Swelling [Unknown]
  - Asthenia [Unknown]
  - Decreased activity [Unknown]
  - Rash pruritic [Unknown]
  - Brain fog [Unknown]
  - Off label use [Unknown]
